FAERS Safety Report 10567027 (Version 2)
Quarter: 2020Q3

REPORT INFORMATION
  Report Type: Report from Study
  Country: US (occurrence: US)
  Receive Date: 20141105
  Receipt Date: 20141125
  Transmission Date: 20201104
  Serious: Yes (Other)
  Sender: FDA-Public Use
  Company Number: US-CELGENE-USA-2014104351

PATIENT
  Age: 58 Year
  Sex: Male
  Weight: 92.7 kg

DRUGS (3)
  1. REVLIMID [Suspect]
     Active Substance: LENALIDOMIDE
     Indication: PAPILLARY THYROID CANCER
     Dosage: 15 MILLIGRAM
     Route: 048
     Dates: start: 20140825, end: 20140914
  2. CEDIRANIB. [Suspect]
     Active Substance: CEDIRANIB
     Indication: PAPILLARY THYROID CANCER
     Route: 048
     Dates: start: 20140825
  3. CEDIRANIB. [Suspect]
     Active Substance: CEDIRANIB
     Route: 048
     Dates: end: 201409

REACTIONS (3)
  - Palmar-plantar erythrodysaesthesia syndrome [Recovered/Resolved with Sequelae]
  - Hypophosphataemia [Recovered/Resolved]
  - Hypokalaemia [Recovered/Resolved]

NARRATIVE: CASE EVENT DATE: 20140916
